FAERS Safety Report 20875560 (Version 2)
Quarter: 2022Q3

REPORT INFORMATION
  Report Type: Spontaneous
  Country: DE (occurrence: DE)
  Receive Date: 20220526
  Receipt Date: 20220903
  Transmission Date: 20221027
  Serious: Yes (Other)
  Sender: FDA-Public Use
  Company Number: DE-BAYER-2022A066844

PATIENT
  Age: 71 Year
  Sex: Female

DRUGS (2)
  1. CLOPIDOGREL [Interacting]
     Active Substance: CLOPIDOGREL BISULFATE
     Indication: Ischaemic stroke
     Dosage: UNK
     Route: 065
  2. VENTAVIS [Interacting]
     Active Substance: ILOPROST
     Indication: Pulmonary arterial hypertension
     Dosage: UNK, ONCE A DAY
     Route: 055
     Dates: start: 20210226

REACTIONS (5)
  - Drug interaction [Unknown]
  - Pharyngeal haemorrhage [Recovered/Resolved with Sequelae]
  - Tongue haemorrhage [Recovered/Resolved]
  - Labelled drug-drug interaction issue [Unknown]
  - Inappropriate schedule of product administration [Unknown]

NARRATIVE: CASE EVENT DATE: 20210226
